FAERS Safety Report 9383027 (Version 1)
Quarter: 2013Q3

REPORT INFORMATION
  Report Type: Spontaneous
  Country: US (occurrence: US)
  Receive Date: 20130704
  Receipt Date: 20130704
  Transmission Date: 20140515
  Serious: No
  Sender: FDA-Public Use
  Company Number: US-009507513-1306USA014350

PATIENT
  Sex: Female

DRUGS (1)
  1. GANIRELIX ACETATE INJECTION [Suspect]
     Indication: ASSISTED FERTILISATION
     Dosage: 250 MICROGRAM, QD
     Route: 058

REACTIONS (1)
  - Ovarian disorder [Unknown]
